FAERS Safety Report 20240080 (Version 1)
Quarter: 2021Q4

REPORT INFORMATION
  Report Type: Spontaneous
  Country: AT (occurrence: AT)
  Receive Date: 20211228
  Receipt Date: 20211228
  Transmission Date: 20220303
  Serious: Yes (Death, Other)
  Sender: FDA-Public Use
  Company Number: AT-SA-SAC20211206001233

PATIENT
  Age: 64 Year
  Sex: Male

DRUGS (1)
  1. FABRAZYME [Suspect]
     Active Substance: AGALSIDASE BETA
     Indication: Fabry^s disease
     Dosage: UNK
     Route: 065

REACTIONS (10)
  - Fabry^s disease [Fatal]
  - Dementia [Unknown]
  - Cerebellar stroke [Unknown]
  - Cardiomyopathy [Unknown]
  - Chronic kidney disease [Unknown]
  - Cardiac failure [Unknown]
  - Renal failure [Unknown]
  - General physical health deterioration [Unknown]
  - Organ failure [Unknown]
  - Cardiac disorder [Unknown]

NARRATIVE: CASE EVENT DATE: 20210301
